FAERS Safety Report 8028548-1 (Version None)
Quarter: 2012Q1

REPORT INFORMATION
  Report Type: 
  Country: None (occurrence: None)
  Receive Date: 20120104
  Receipt Date: 20111221
  Transmission Date: 20120608
  Serious: Yes (Hospitalization)
  Sender: FDA-Public Use
  Company Number: 2011-01443

PATIENT
  Age: 68 Year
  Sex: Male

DRUGS (5)
  1. SIMVASTATIN [Suspect]
     Indication: PRODUCT USED FOR UNKNOWN INDICATION
     Dosage: 40 MG (40 MG, 1 IN 1 D), ORAL
     Route: 048
     Dates: end: 20111206
  2. FLOXACILLIN SODIUM [Suspect]
     Indication: WOUND INFECTION
     Dosage: 2000 MG (500 MG, 4 IN 1 D), ORAL
     Route: 048
     Dates: start: 20111010, end: 20111024
  3. ASPIRIN [Concomitant]
  4. ACETAMINOPHEN [Concomitant]
  5. DALTEPARIN SODIUM (FRAGMIN) (UNKNOWN) [Concomitant]

REACTIONS (1)
  - HEPATITIS CHOLESTATIC [None]
